FAERS Safety Report 6505275-0 (Version None)
Quarter: 2009Q4

REPORT INFORMATION
  Report Type: 
  Country: None (occurrence: None)
  Receive Date: 20091216
  Receipt Date: 20091130
  Transmission Date: 20100525
  Serious: Yes (Other)
  Sender: FDA-Public Use
  Company Number: 2009BI017626

PATIENT
  Age: 43 Year
  Sex: Female

DRUGS (6)
  1. ZEVALIN [Suspect]
     Indication: EXTRANODAL MARGINAL ZONE B-CELL LYMPHOMA (MALT TYPE) STAGE IV
     Dosage: 903 MGQ;1X;IV
     Route: 042
     Dates: start: 20081104, end: 20081111
  2. RITUXIMAB [Concomitant]
  3. LOXONIN [Concomitant]
  4. POLARAMINE [Concomitant]
  5. FLUDEOXYGLUCOSE [Concomitant]
  6. RITUXIMAB [Concomitant]

REACTIONS (2)
  - BONE MARROW FAILURE [None]
  - UPPER RESPIRATORY TRACT INFLAMMATION [None]
